FAERS Safety Report 8211589-9 (Version None)
Quarter: 2012Q1

REPORT INFORMATION
  Report Type: 
  Country: None (occurrence: None)
  Receive Date: 20120315
  Receipt Date: 20120306
  Transmission Date: 20120608
  Serious: Yes (Other)
  Sender: FDA-Public Use
  Company Number: US-JNJFOC-20120305060

PATIENT
  Sex: Male
  Weight: 99.79 kg

DRUGS (12)
  1. DURAGESIC-100 [Suspect]
     Route: 062
     Dates: start: 20111101
  2. DURAGESIC-100 [Suspect]
     Route: 062
  3. DURAGESIC-100 [Suspect]
     Route: 062
  4. DURAGESIC-100 [Suspect]
     Route: 062
     Dates: start: 20111101
  5. DURAGESIC-100 [Suspect]
     Indication: CERVICAL SPINAL STENOSIS
     Route: 062
     Dates: start: 20060101
  6. DURAGESIC-100 [Suspect]
     Route: 062
     Dates: start: 20111101
  7. DURAGESIC-100 [Suspect]
     Route: 062
  8. DURAGESIC-100 [Suspect]
     Indication: INTERVERTEBRAL DISC PROTRUSION
     Route: 062
     Dates: start: 20060101
  9. DURAGESIC-100 [Suspect]
     Indication: SPINAL OSTEOARTHRITIS
     Route: 062
     Dates: start: 20060101
  10. DURAGESIC-100 [Suspect]
     Indication: SPINAL COLUMN STENOSIS
     Route: 062
     Dates: start: 20060101
  11. DURAGESIC-100 [Suspect]
     Route: 062
     Dates: start: 20111101
  12. DURAGESIC-100 [Suspect]
     Route: 062

REACTIONS (4)
  - DRUG INEFFECTIVE [None]
  - PAIN IN EXTREMITY [None]
  - PRODUCT QUALITY ISSUE [None]
  - RADICULOPATHY [None]
